FAERS Safety Report 11969447 (Version 1)
Quarter: 2016Q1

REPORT INFORMATION
  Report Type: Spontaneous
  Country: US (occurrence: None)
  Receive Date: 20160119
  Receipt Date: 20160119
  Transmission Date: 20160526
  Serious: Yes (Life-Threatening)
  Sender: FDA-Public Use
  Company Number: 2015-US-005708

PATIENT
  Age: 22 Month

DRUGS (3)
  1. DEXAMETHASONE (DEXAMETHASONE SODIUM SUCCINATE) [Concomitant]
     Active Substance: DEXAMETHASONE
  2. ONDANSETRON. [Concomitant]
     Active Substance: ONDANSETRON
  3. ERWINAZE [Suspect]
     Active Substance: ASPARAGINASE ERWINIA CHRYSANTHEMI
     Route: 030
     Dates: start: 20141103, end: 20141114

REACTIONS (1)
  - Anaphylactic reaction [None]

NARRATIVE: CASE EVENT DATE: 20150128
